FAERS Safety Report 21361658 (Version 1)
Quarter: 2022Q3

REPORT INFORMATION
  Report Type: Spontaneous
  Country: US (occurrence: None)
  Receive Date: 20220921
  Receipt Date: 20220921
  Transmission Date: 20221026
  Serious: Yes (Hospitalization)
  Sender: FDA-Public Use
  Company Number: None

PATIENT
  Sex: Female

DRUGS (2)
  1. GAMMAGARD LIQUID [Suspect]
     Active Substance: HUMAN IMMUNOGLOBULIN G
     Indication: Riley-Day syndrome
     Dosage: OTHER FREQUENCY : DAILY 2 DAYS EVERY;?
     Route: 042
     Dates: start: 202103
  2. GAMMAGARD LIQUID [Suspect]
     Active Substance: HUMAN IMMUNOGLOBULIN G
     Indication: Riley-Day syndrome
     Dosage: OTHER FREQUENCY : DAILY 2 DAYS EVERY;?
     Route: 042
     Dates: start: 202103

REACTIONS (1)
  - Hospitalisation [None]
